FAERS Safety Report 9262433 (Version 1)
Quarter: 2013Q2

REPORT INFORMATION
  Report Type: Spontaneous
  Country: US (occurrence: None)
  Receive Date: 20130425
  Receipt Date: 20130425
  Transmission Date: 20140414
  Serious: Yes (Life-Threatening)
  Sender: FDA-Public Use
  Company Number: None

PATIENT
  Age: 52 Year
  Sex: Female
  Weight: 68.04 kg

DRUGS (1)
  1. FENOFIBRATE [Suspect]
     Indication: HYPERLIPIDAEMIA
     Route: 048
     Dates: start: 20130407, end: 20130424

REACTIONS (5)
  - Abdominal pain [None]
  - Hyperhidrosis [None]
  - Fatigue [None]
  - Product substitution issue [None]
  - Therapeutic response unexpected with drug substitution [None]
